FAERS Safety Report 7153545-8 (Version None)
Quarter: 2010Q4

REPORT INFORMATION
  Report Type: 
  Country: None (occurrence: None)
  Receive Date: 20101213
  Receipt Date: 20101206
  Transmission Date: 20110411
  Serious: Yes (Death, Life-Threatening)
  Sender: FDA-Public Use
  Company Number: CH-GENZYME-CLOF-1001289

PATIENT
  Sex: Male
  Weight: 79 kg

DRUGS (6)
  1. EVOLTRA [Suspect]
     Indication: ACUTE MYELOID LEUKAEMIA
     Dosage: 26.55 MG, QDX5
     Route: 042
     Dates: start: 20101009, end: 20101013
  2. IDARUBICIN HCL [Suspect]
     Indication: ACUTE MYELOID LEUKAEMIA
     Dosage: 21.25 MG, QDX3
     Route: 042
     Dates: start: 20101009, end: 20101011
  3. CYTARABINE [Suspect]
     Indication: ACUTE MYELOID LEUKAEMIA
     Dosage: 354 MG, QD
     Route: 042
     Dates: start: 20101009, end: 20101015
  4. ESOMEPRAZOLE [Concomitant]
     Indication: PROPHYLAXIS
     Dosage: 40 MG, UNK
     Route: 048
     Dates: start: 20101009, end: 20101023
  5. SPIRONOLACTONUM [Concomitant]
     Indication: HYPERTONIA
     Dosage: 50 MG, UNK
     Route: 048
     Dates: start: 20101020, end: 20101023
  6. MORPHIN [Concomitant]
     Indication: PAIN
     Dosage: 20 MG, UNK
     Route: 042
     Dates: start: 20101017, end: 20101023

REACTIONS (4)
  - BONE MARROW FAILURE [None]
  - MULTI-ORGAN FAILURE [None]
  - NEUTROPENIC COLITIS [None]
  - PULMONARY OEDEMA [None]
